FAERS Safety Report 17450470 (Version 1)
Quarter: 2020Q1

REPORT INFORMATION
  Report Type: Spontaneous
  Country: US (occurrence: US)
  Receive Date: 20200210
  Receipt Date: 20200210
  Transmission Date: 20200409
  Serious: Yes (Hospitalization)
  Sender: FDA-Public Use
  Company Number: None

PATIENT
  Age: 80 Year
  Sex: Male
  Weight: 108.86 kg

DRUGS (2)
  1. DAPTOMYCIN (DAPTOMYCIN 250MG/VIL INJ) [Suspect]
     Active Substance: DAPTOMYCIN
     Indication: CELLULITIS
     Dosage: ?          OTHER STRENGTH:250 MG/VIL;?
     Route: 042
     Dates: start: 20191231, end: 20200106
  2. CEFEPIME (CEFEPIME HCL 2GM/VIL INJ) [Suspect]
     Active Substance: CEFEPIME HYDROCHLORIDE
     Dosage: ?          OTHER STRENGTH:2 GM/MIL;?
     Route: 042
     Dates: start: 20191231, end: 20200106

REACTIONS (4)
  - Acute kidney injury [None]
  - Tubulointerstitial nephritis [None]
  - Blood creatinine increased [None]
  - Encephalopathy [None]

NARRATIVE: CASE EVENT DATE: 20200113
